FAERS Safety Report 10884654 (Version 1)
Quarter: 2015Q1

REPORT INFORMATION
  Report Type: Spontaneous
  Country: US (occurrence: None)
  Receive Date: 20150227
  Receipt Date: 20150227
  Transmission Date: 20150721
  Serious: Yes (Other)
  Sender: FDA-Public Use
  Company Number: None

PATIENT
  Age: 14 Year
  Sex: Female
  Weight: 73.2 kg

DRUGS (2)
  1. CIPROFLOXACIN. [Suspect]
     Active Substance: CIPROFLOXACIN
     Indication: SALMONELLOSIS
     Dosage: 06-MAR-2015
     Route: 042
     Dates: start: 20150125
  2. CIPROFLOXACIN. [Suspect]
     Active Substance: CIPROFLOXACIN
     Indication: NERVOUS SYSTEM DISORDER
     Dosage: 06-MAR-2015
     Route: 042
     Dates: start: 20150125

REACTIONS (4)
  - Throat irritation [None]
  - Nasal congestion [None]
  - Cough [None]
  - Body temperature increased [None]

NARRATIVE: CASE EVENT DATE: 20150213
